FAERS Safety Report 5336991-4 (Version None)
Quarter: 2007Q2

REPORT INFORMATION
  Report Type: 
  Country: None (occurrence: None)
  Receive Date: 20070523
  Receipt Date: 20070508
  Transmission Date: 20071010
  Serious: Yes (Other)
  Sender: FDA-Public Use
  Company Number: S07-UKI-01809-01

PATIENT
  Age: 32 Year
  Sex: Female

DRUGS (4)
  1. ESCITALOPRAM [Suspect]
     Dosage: 10 MG QD PO
     Route: 048
     Dates: start: 20070301, end: 20070420
  2. PROPRANOLOL [Concomitant]
  3. ZOPICLONE [Concomitant]
  4. DIAZEPAM [Concomitant]

REACTIONS (7)
  - BALANCE DISORDER [None]
  - BIPOLAR DISORDER [None]
  - DYSARTHRIA [None]
  - HALLUCINATION [None]
  - MANIA [None]
  - SELF-INJURIOUS IDEATION [None]
  - SUICIDAL IDEATION [None]
